FAERS Safety Report 15260561 (Version 2)
Quarter: 2020Q1

REPORT INFORMATION
  Report Type: Spontaneous
  Country: GB (occurrence: GB)
  Receive Date: 20180809
  Receipt Date: 20200121
  Transmission Date: 20200409
  Serious: Yes (Other)
  Sender: FDA-Public Use
  Company Number: PHHY2018GB067791

PATIENT
  Age: 19 Year
  Sex: Female
  Weight: 55 kg

DRUGS (3)
  1. PHENOXYMETHYLPENICILLIN (= PENICILLIN V) [Suspect]
     Active Substance: PENICILLIN V
     Indication: PRODUCT USED FOR UNKNOWN INDICATION
     Dosage: UNK
     Route: 065
     Dates: start: 20180604
  2. SALBUTAMOL [Concomitant]
     Active Substance: ALBUTEROL
     Indication: ASTHMA
     Dosage: 2 DF
     Route: 055
     Dates: start: 20171024, end: 20180409
  3. FOSTAIR [Concomitant]
     Active Substance: BECLOMETHASONE\FORMOTEROL
     Indication: PRODUCT USED FOR UNKNOWN INDICATION
     Dosage: 2 DF, QD (ONE PUFF TWICE DAILY AND ONE PUFF IF REQUIRED)
     Route: 065
     Dates: start: 20171024, end: 20180409

REACTIONS (2)
  - Hypersensitivity [Unknown]
  - Abdominal discomfort [Unknown]

NARRATIVE: CASE EVENT DATE: 20180611
